FAERS Safety Report 7960940 (Version 4)
Quarter: 2013Q2

REPORT INFORMATION
  Report Type: Report from Study
  Country: US (occurrence: US)
  Receive Date: 20110525
  Receipt Date: 20130424
  Transmission Date: 20140414
  Serious: Yes (Hospitalization)
  Sender: FDA-Public Use
  Company Number: US-UCBSA-030969

PATIENT
  Age: 23 Year
  Sex: Male
  Weight: 47.62 kg

DRUGS (16)
  1. CERTOLIZUMAB PEGOL [Suspect]
     Indication: CROHN^S DISEASE
     Route: 058
     Dates: start: 20100326
  2. CERTOLIZUMAB PEGOL [Suspect]
     Indication: CROHN^S DISEASE
     Route: 058
     Dates: start: 20100629, end: 20101213
  3. CERTOLIZUMAB PEGOL [Suspect]
     Indication: CROHN^S DISEASE
     Route: 058
     Dates: start: 20110114
  4. CERTOLIZUMAB PEGOL [Suspect]
     Indication: CROHN^S DISEASE
     Route: 058
     Dates: start: 20110121
  5. CERTOLIZUMAB PEGOL [Suspect]
     Indication: CROHN^S DISEASE
     Route: 058
     Dates: start: 20110225
  6. CERTOLIZUMAB PEGOL [Suspect]
     Indication: CROHN^S DISEASE
     Route: 058
     Dates: start: 20110405
  7. PREDNISONE [Concomitant]
     Indication: CROHN^S DISEASE
     Dosage: DAILY; 5MG 2 TABLETS DAILY X 4 DAYS, THEN 1 TABLET UNTIL SEEN BY DOCTOR
     Dates: start: 20091001, end: 20110221
  8. PREDNISONE [Concomitant]
     Indication: CROHN^S DISEASE
     Dosage: 10MG DAILY FOR 1 WEEK FROM 08/FEB/2011AND TO DECREASE THAT BY 2.5MG DAILY EVERY WEEK UNTIL HE IS OFF
     Dates: start: 20110208
  9. 6-MP [Concomitant]
     Dosage: DAILY
     Route: 048
     Dates: start: 201004
  10. 6-MP [Concomitant]
     Dosage: DAILY
  11. CLONAZEPAM [Concomitant]
     Route: 048
  12. PERCOCET [Concomitant]
     Indication: PAIN
     Dosage: 5/325MG 1-2 TABLETS; Q4H
     Route: 048
  13. LEVAQUIN [Concomitant]
     Route: 048
  14. VITAMIN C [Concomitant]
  15. VITAMIN D [Concomitant]
  16. TRAZODONE [Concomitant]

REACTIONS (2)
  - Pneumonia [Recovered/Resolved]
  - Dehydration [Recovered/Resolved]
